FAERS Safety Report 23578436 (Version 2)
Quarter: 2024Q2

REPORT INFORMATION
  Report Type: Spontaneous
  Country: US (occurrence: US)
  Receive Date: 20240229
  Receipt Date: 20240424
  Transmission Date: 20240715
  Serious: Yes (Hospitalization, Other)
  Sender: FDA-Public Use
  Company Number: US-UCBSA-2023060622

PATIENT
  Sex: Female
  Weight: 58.4 kg

DRUGS (1)
  1. RYSTIGGO [Suspect]
     Active Substance: ROZANOLIXIZUMAB-NOLI
     Indication: Product used for unknown indication
     Dosage: UNK

REACTIONS (1)
  - Meningitis aseptic [Recovered/Resolved]
